FAERS Safety Report 26034203 (Version 1)
Quarter: 2025Q4

REPORT INFORMATION
  Report Type: Spontaneous
  Country: US (occurrence: None)
  Receive Date: 20251111
  Receipt Date: 20251111
  Transmission Date: 20260117
  Serious: Yes (Hospitalization, Other)
  Sender: FDA-CTU
  Company Number: None

PATIENT
  Age: 25 Year
  Sex: Male

DRUGS (1)
  1. GATTEX [Suspect]
     Active Substance: TEDUGLUTIDE\WATER
     Indication: Short-bowel syndrome
     Dosage: FREQUENCY : DAILY;?OTHER ROUTE : INJECTABLE;?
     Route: 050
     Dates: start: 20231213

REACTIONS (3)
  - Ileus [None]
  - Blood potassium decreased [None]
  - Therapy cessation [None]

NARRATIVE: CASE EVENT DATE: 20251027
